FAERS Safety Report 7540820-8 (Version None)
Quarter: 2011Q2

REPORT INFORMATION
  Report Type: 
  Country: None (occurrence: None)
  Receive Date: 20110603
  Receipt Date: 20110524
  Transmission Date: 20111010
  Serious: Yes (Hospitalization)
  Sender: FDA-Public Use
  Company Number: 2011MA006515

PATIENT
  Age: 32 Year
  Sex: Female

DRUGS (1)
  1. VENLAFAXINE HYDROCHLORIDE [Suspect]
     Indication: DEPRESSION
     Dosage: 75 MG;QD;PO
     Route: 048
     Dates: start: 20101006

REACTIONS (6)
  - MYALGIA [None]
  - BODY TEMPERATURE INCREASED [None]
  - CHILLS [None]
  - ARTHRALGIA [None]
  - SARCOIDOSIS [None]
  - BONE PAIN [None]
